FAERS Safety Report 20467536 (Version 1)
Quarter: 2022Q1

REPORT INFORMATION
  Report Type: Spontaneous
  Country: US (occurrence: US)
  Receive Date: 20220214
  Receipt Date: 20220214
  Transmission Date: 20220424
  Serious: No
  Sender: FDA-Public Use
  Company Number: US-APOTEX-2021AP006766

PATIENT
  Sex: Male

DRUGS (8)
  1. MODAFINIL [Suspect]
     Active Substance: MODAFINIL
     Indication: Somnolence
     Dosage: 1 DOSAGE FORM, QD
     Route: 065
  2. MODAFINIL [Suspect]
     Active Substance: MODAFINIL
     Indication: Fatigue
  3. LEVEMIR [Concomitant]
     Active Substance: INSULIN DETEMIR
     Indication: Diabetes mellitus
     Dosage: UNK, EVERY MORNING
     Route: 065
  4. HUMALOG [Concomitant]
     Active Substance: INSULIN LISPRO
     Indication: Diabetes mellitus
     Dosage: UNK, EVERYTIME HE EATS
     Route: 065
  5. OZEMPIC [Concomitant]
     Active Substance: SEMAGLUTIDE
     Indication: Diabetes mellitus
     Dosage: UNK, Q.WK.
     Route: 065
  6. PREDNISONE [Concomitant]
     Active Substance: PREDNISONE
     Indication: Myasthenia gravis
     Dosage: 10 MILLIGRAM, QD
     Route: 065
  7. PREDNISONE [Concomitant]
     Active Substance: PREDNISONE
     Indication: Autoimmune disorder
  8. MESTINON [Concomitant]
     Active Substance: PYRIDOSTIGMINE BROMIDE
     Indication: Myasthenia gravis
     Dosage: UNK UNK, Q.3H.
     Route: 065

REACTIONS (1)
  - Peripheral swelling [Recovered/Resolved]
